FAERS Safety Report 21754056 (Version 1)
Quarter: 2022Q4

REPORT INFORMATION
  Report Type: Report from Study
  Country: US (occurrence: US)
  Receive Date: 20221220
  Receipt Date: 20221220
  Transmission Date: 20230112
  Serious: Yes (Hospitalization, Other)
  Sender: FDA-Public Use
  Company Number: US-GILEAD-2022-0609746

PATIENT
  Age: 45 Year
  Sex: Male

DRUGS (5)
  1. AZTREONAM LYSINE [Suspect]
     Active Substance: AZTREONAM LYSINE
     Indication: Cystic fibrosis
     Dosage: 75 MG INHALED 3 TIMES A DAY FOR 28 DAYS ON AND 28 DAYS OFF
     Route: 055
     Dates: start: 202210
  2. CREON [Concomitant]
     Active Substance: PANCRELIPASE AMYLASE\PANCRELIPASE LIPASE\PANCRELIPASE PROTEASE
     Indication: Cystic fibrosis
     Dosage: TAKE 5 CAPSULES BY MOUTH WITH EACH MEAL AND 3 CAPSULES WITH EACH SNACK FOR A TOTAL OF 21 CAPSULES DA
     Route: 048
     Dates: start: 202211
  3. COLISTIMETHATE SODIUM [Concomitant]
     Active Substance: COLISTIMETHATE SODIUM
     Indication: Cystic fibrosis
     Dosage: INHALE 3ML VIA NEBULIZER TWICE DAILY FOR THE FIRST 14 DAYS EACH MONTH.
     Route: 055
     Dates: start: 201907
  4. TACROLIMUS [Concomitant]
     Active Substance: TACROLIMUS
     Indication: Lung transplant
     Dosage: 2 MG BY MOUTH TWICE DAILY
     Route: 048
     Dates: start: 202211
  5. MYCOPHENOLIC ACID [Concomitant]
     Active Substance: MYCOPHENOLIC ACID
     Indication: Lung transplant
     Dosage: 1000 MG BY MOUTH TWICE DAILY
     Route: 048

REACTIONS (1)
  - Pneumonia [Unknown]
